FAERS Safety Report 23833935 (Version 1)
Quarter: 2024Q2

REPORT INFORMATION
  Report Type: Spontaneous
  Country: US (occurrence: US)
  Receive Date: 20240509
  Receipt Date: 20240509
  Transmission Date: 20240716
  Serious: No
  Sender: FDA-Public Use
  Company Number: US-OPELLA-2024OHG015808

PATIENT
  Sex: Female

DRUGS (1)
  1. NASACORT ALLERGY 24HR [Suspect]
     Active Substance: TRIAMCINOLONE ACETONIDE
     Indication: Nasal congestion
     Dosage: USED ON HER NOSE ABOUT 3-4 TIMES ?STRENGTH/UNITS: 55 ?G/DOSE
     Route: 045

REACTIONS (2)
  - Drug ineffective [Unknown]
  - No adverse event [Unknown]
